FAERS Safety Report 7162225-4 (Version None)
Quarter: 2010Q4

REPORT INFORMATION
  Report Type: 
  Country: None (occurrence: None)
  Receive Date: 20101215
  Receipt Date: 20090918
  Transmission Date: 20110411
  Serious: Yes (Other)
  Sender: FDA-Public Use
  Company Number: CA-PFIZER INC-2009249950

PATIENT
  Age: 33 Year

DRUGS (2)
  1. LYRICA [Suspect]
     Dosage: 75 MG, 1X/DAY
     Route: 050
  2. CIPRALEX [Concomitant]
     Route: 050

REACTIONS (1)
  - ABORTION SPONTANEOUS [None]
